FAERS Safety Report 5385839-0 (Version None)
Quarter: 2007Q3

REPORT INFORMATION
  Report Type: 
  Country: None (occurrence: None)
  Receive Date: 20070712
  Receipt Date: 20070706
  Transmission Date: 20080115
  Serious: Yes (Hospitalization, Other)
  Sender: FDA-Public Use
  Company Number: US-ELI_LILLY_AND_COMPANY-US200707001468

PATIENT
  Age: 66 Year
  Sex: Female
  Weight: 74.829 kg

DRUGS (2)
  1. BYETTA [Suspect]
     Indication: TYPE 2 DIABETES MELLITUS
     Dosage: 5 UG, 2/D
     Route: 058
     Dates: start: 20070301, end: 20070401
  2. BYETTA [Suspect]
     Dosage: 10 UG, 2/D
     Route: 058
     Dates: start: 20070401, end: 20070606

REACTIONS (6)
  - COLON OPERATION [None]
  - DIARRHOEA [None]
  - PELVIC INFECTION [None]
  - PRESYNCOPE [None]
  - VOMITING [None]
  - WEIGHT DECREASED [None]
